FAERS Safety Report 7831025-1 (Version None)
Quarter: 2011Q4

REPORT INFORMATION
  Report Type: 
  Country: None (occurrence: None)
  Receive Date: 20111021
  Receipt Date: 20111018
  Transmission Date: 20120403
  Serious: Yes (Death, Hospitalization, Other)
  Sender: FDA-Public Use
  Company Number: VE-PFIZER INC-2011235515

PATIENT
  Age: 81 Year
  Sex: Female

DRUGS (4)
  1. NORVASC [Concomitant]
  2. PLAVIX [Concomitant]
  3. DIOVAN [Concomitant]
  4. LIPITOR [Suspect]
     Indication: MITRAL VALVE DISEASE
     Dosage: UNK, 1X/DAY
     Route: 048
     Dates: start: 20050101, end: 20110901

REACTIONS (4)
  - CELLULITIS [None]
  - ABSCESS LIMB [None]
  - PNEUMONIA [None]
  - BRONCHOSPASM [None]
